FAERS Safety Report 8510247-0 (Version None)
Quarter: 2012Q3

REPORT INFORMATION
  Report Type: 
  Country: None (occurrence: None)
  Receive Date: 20120713
  Receipt Date: 20120621
  Transmission Date: 20120928
  Serious: No
  Sender: FDA-Public Use
  Company Number: US-ASTRAZENECA-2012SE41886

PATIENT
  Age: 44 Year
  Sex: Female
  Weight: 74.8 kg

DRUGS (4)
  1. FROVA [Concomitant]
     Indication: MIGRAINE
  2. RELAFEN [Concomitant]
  3. ZOMIG [Suspect]
     Indication: MIGRAINE
     Route: 048
  4. ZOMIG [Suspect]
     Route: 048

REACTIONS (4)
  - ADVERSE EVENT [None]
  - DRUG DISPENSING ERROR [None]
  - MIGRAINE [None]
  - DRUG INEFFECTIVE [None]
